FAERS Safety Report 9994940 (Version 1)
Quarter: 2014Q1

REPORT INFORMATION
  Report Type: Spontaneous
  Country: US (occurrence: None)
  Receive Date: 20140214
  Receipt Date: 20140214
  Transmission Date: 20141002
  Serious: Yes (Hospitalization)
  Sender: FDA-Public Use
  Company Number: 1000051760

PATIENT
  Sex: Male

DRUGS (1)
  1. BYSTOLIC [Suspect]

REACTIONS (1)
  - Pulmonary oedema [None]
